FAERS Safety Report 7071042-5 (Version None)
Quarter: 2010Q4

REPORT INFORMATION
  Report Type: 
  Country: None (occurrence: None)
  Receive Date: 20101027
  Receipt Date: 20101027
  Transmission Date: 20110411
  Serious: Yes (Hospitalization)
  Sender: FDA-Public Use
  Company Number: None

PATIENT
  Sex: Female
  Weight: 7.7111 kg

DRUGS (1)
  1. THEETHING TABLETS HYLAND'S [Suspect]
     Indication: TEETHING
     Dosage: 3 TABLETS 4X PER DAY PO
     Route: 048
     Dates: start: 20100810, end: 20100910

REACTIONS (1)
  - DYSPNOEA [None]
